FAERS Safety Report 5649100-9 (Version None)
Quarter: 2008Q1

REPORT INFORMATION
  Report Type: 
  Country: None (occurrence: None)
  Receive Date: 20080304
  Receipt Date: 20080219
  Transmission Date: 20080703
  Serious: Yes (Hospitalization)
  Sender: FDA-Public Use
  Company Number: US-ELI_LILLY_AND_COMPANY-USA0507102445

PATIENT
  Age: 78 Year
  Sex: Female

DRUGS (2)
  1. FORTEO [Suspect]
     Indication: OSTEOPOROSIS
     Dosage: UNK, UNKNOWN
     Dates: start: 20050630, end: 20050707
  2. FORTEO [Suspect]
     Dates: start: 20080107

REACTIONS (8)
  - DECREASED APPETITE [None]
  - ERUCTATION [None]
  - GASTRIC DISORDER [None]
  - HOSPITALISATION [None]
  - HYPERHIDROSIS [None]
  - MENTAL DISORDER [None]
  - NAUSEA [None]
  - RESTLESSNESS [None]
